FAERS Safety Report 21198622 (Version 37)
Quarter: 2024Q2

REPORT INFORMATION
  Report Type: Spontaneous
  Country: GB (occurrence: GB)
  Receive Date: 20220811
  Receipt Date: 20240429
  Transmission Date: 20240715
  Serious: Yes (Death, Hospitalization, Other)
  Sender: FDA-Public Use
  Company Number: GB-Crescent Pharma Limited-001202203-000055

PATIENT
  Age: 59 Year
  Sex: Male
  Weight: 62 kg

DRUGS (84)
  1. TRASTUZUMAB [Suspect]
     Active Substance: TRASTUZUMAB
     Indication: Breast cancer metastatic
     Dosage: 1218 MILLIGRAM, QWK
     Route: 042
     Dates: start: 20150930
  2. TRASTUZUMAB [Suspect]
     Active Substance: TRASTUZUMAB
     Dosage: 420 MILLIGRAM, QWK (1827 MG QWK)  (WE (609 MG, 3/W) /INTRAVENOUS (NOT OTHERWISE SPECIFIED)
     Route: 042
     Dates: start: 20150930
  3. TRASTUZUMAB [Suspect]
     Active Substance: TRASTUZUMAB
     Dosage: 609 MILLIGRAM, Q3WK
     Route: 050
     Dates: start: 20150930
  4. TRASTUZUMAB [Suspect]
     Active Substance: TRASTUZUMAB
     Dosage: 609 MILLIGRAM, Q2WK
     Route: 042
     Dates: start: 20150930
  5. TRASTUZUMAB [Suspect]
     Active Substance: TRASTUZUMAB
     Dosage: 420 MG, Q3W (CUMULATIVE DOSE: 820.83 MG)
     Route: 042
     Dates: start: 20150930
  6. TRASTUZUMAB [Suspect]
     Active Substance: TRASTUZUMAB
     Dosage: 840 MILLIGRAM, Q3WK
     Route: 042
  7. TRASTUZUMAB [Suspect]
     Active Substance: TRASTUZUMAB
     Dosage: 1827 MILLIGRAM, QWK
     Route: 065
     Dates: start: 20150930
  8. TRASTUZUMAB [Suspect]
     Active Substance: TRASTUZUMAB
     Dosage: 1218 MILLIGRAM
     Route: 065
     Dates: start: 20151130
  9. XGEVA [Suspect]
     Active Substance: DENOSUMAB
     Indication: Metastases to bone
     Dosage: 120 MILLIGRAM, OTHER (EVERY 9 WEEKS)
     Route: 058
     Dates: start: 20150930
  10. XGEVA [Suspect]
     Active Substance: DENOSUMAB
     Indication: Gastrooesophageal reflux disease
     Dosage: 120 MILLIGRAM, QD
     Route: 058
     Dates: start: 20150930
  11. RISPERDAL [Suspect]
     Active Substance: RISPERIDONE
     Indication: Schizophrenia
     Dosage: 3 MILLIGRAM, Q12H
     Route: 048
  12. RISPERDAL [Suspect]
     Active Substance: RISPERIDONE
     Dosage: 4 MILLIGRAM, BID
     Route: 048
  13. RISPERDAL [Suspect]
     Active Substance: RISPERIDONE
     Dosage: 4 MILLIGRAM, QD
     Route: 065
  14. RISPERDAL [Suspect]
     Active Substance: RISPERIDONE
     Dosage: 6 MILLIGRAM, QD
     Route: 048
  15. RISPERDAL [Suspect]
     Active Substance: RISPERIDONE
     Dosage: 3 MILLIGRAM, BID
     Route: 048
  16. CHLORPROMAZINE [Suspect]
     Active Substance: CHLORPROMAZINE
     Indication: Schizophrenia
     Dosage: 75 MILLIGRAM
     Route: 048
  17. CHLORPROMAZINE [Suspect]
     Active Substance: CHLORPROMAZINE
     Indication: Schizophrenia
     Dosage: 75 MILLIGRAM
     Route: 048
  18. ZUCLOPENTHIXOL [Suspect]
     Active Substance: ZUCLOPENTHIXOL
     Indication: Product used for unknown indication
     Dosage: 400 MILLIGRAM, QWK
     Route: 048
     Dates: start: 20040217, end: 20040601
  19. ZUCLOPENTHIXOL [Suspect]
     Active Substance: ZUCLOPENTHIXOL
     Dosage: 400 MILLIGRAM, CYCLICAL, (400 MG, BIWEEKLY)  )
     Route: 048
     Dates: start: 20040217, end: 20040601
  20. ZUCLOPENTHIXOL [Suspect]
     Active Substance: ZUCLOPENTHIXOL
     Dosage: 300 MILLIGRAM, QWK
     Route: 048
     Dates: start: 20091018
  21. HALDOL [Suspect]
     Active Substance: HALOPERIDOL
     Indication: Schizophrenia
     Dosage: 40 MILLIGRAM, QD
     Route: 048
  22. HALDOL [Suspect]
     Active Substance: HALOPERIDOL
     Dosage: 20 MILLIGRAM, QD
     Route: 048
  23. HALDOL [Suspect]
     Active Substance: HALOPERIDOL
     Dosage: 10 MILLIGRAM, QD
     Route: 048
  24. HALDOL [Suspect]
     Active Substance: HALOPERIDOL
     Dosage: 20 MILLIGRAM, Q12H
     Route: 048
  25. HALDOL [Suspect]
     Active Substance: HALOPERIDOL
     Dosage: 20 MILLIGRAM, BID
     Route: 048
  26. LITHIUM [Suspect]
     Active Substance: LITHIUM
     Indication: Schizophrenia
     Dosage: 6 MILLIGRAM, QD
     Route: 048
  27. LITHIUM [Suspect]
     Active Substance: LITHIUM
     Dosage: 1 GRAM
     Route: 048
  28. LITHIUM [Suspect]
     Active Substance: LITHIUM
     Dosage: 2 GRAM
     Route: 048
  29. LITHIUM [Suspect]
     Active Substance: LITHIUM
     Dosage: 1 MILLIGRAM
     Route: 050
  30. LITHIUM [Suspect]
     Active Substance: LITHIUM
     Dosage: 2 GRAM, QD
     Route: 050
  31. RISPERIDONE [Suspect]
     Active Substance: RISPERIDONE
     Indication: Schizophrenia
     Dosage: 1 GRAM, QD
     Route: 048
  32. RISPERIDONE [Suspect]
     Active Substance: RISPERIDONE
     Dosage: 3 MILLIGRAM, QD
     Route: 048
  33. RISPERIDONE [Suspect]
     Active Substance: RISPERIDONE
     Dosage: 4 MILLIGRAM, QD
     Route: 065
  34. RISPERIDONE [Suspect]
     Active Substance: RISPERIDONE
     Dosage: 1 MILLIGRAM, QD
     Route: 048
  35. CLOZARIL [Suspect]
     Active Substance: CLOZAPINE
     Indication: Schizophrenia
     Dosage: 300 MILLIGRAM, QD
     Route: 065
     Dates: start: 20100823
  36. CLOZARIL [Suspect]
     Active Substance: CLOZAPINE
     Dosage: 6000 MILLIGRAM
     Route: 048
     Dates: start: 20100823
  37. CLOZARIL [Suspect]
     Active Substance: CLOZAPINE
     Dosage: 245 MILLIGRAM, QD
     Route: 048
     Dates: start: 20100823, end: 20200823
  38. CLOZARIL [Suspect]
     Active Substance: CLOZAPINE
     Dosage: 100 MILLIGRAM, QD
     Route: 048
     Dates: start: 2011
  39. CLOZARIL [Suspect]
     Active Substance: CLOZAPINE
     Dosage: 600 MILLIGRAM, QD
     Route: 048
     Dates: start: 2011
  40. CLOZARIL [Suspect]
     Active Substance: CLOZAPINE
     Dosage: UNK (1 DOSAGE FORM, EACH MORNING) (
     Route: 048
  41. OLANZAPINE [Suspect]
     Active Substance: OLANZAPINE
     Indication: Schizophrenia
     Dosage: 1 MILLIGRAM
     Route: 048
     Dates: start: 20040217
  42. OLANZAPINE [Suspect]
     Active Substance: OLANZAPINE
     Indication: Schizophrenia
     Dosage: 10 MG
     Route: 048
  43. ACETAMINOPHEN [Suspect]
     Active Substance: ACETAMINOPHEN
     Indication: Pain
     Dosage: 500 MILLIGRAM
     Route: 048
     Dates: start: 20150127
  44. ACETAMINOPHEN [Suspect]
     Active Substance: ACETAMINOPHEN
     Dosage: 15 MILLIGRAM, QD
     Route: 048
     Dates: start: 201510
  45. ARIPIPRAZOLE [Suspect]
     Active Substance: ARIPIPRAZOLE
     Indication: Schizophrenia
     Dosage: 5 MILLIGRAM
     Route: 048
  46. ARIPIPRAZOLE [Suspect]
     Active Substance: ARIPIPRAZOLE
     Indication: Schizophrenia
  47. ZUCLOPENTHIXOL [Suspect]
     Active Substance: ZUCLOPENTHIXOL
     Indication: Schizophrenia
     Dosage: 400 MG, OTHER (BIWEEKLY)
     Route: 030
     Dates: start: 20030204, end: 20041018
  48. ZUCLOPENTHIXOL [Suspect]
     Active Substance: ZUCLOPENTHIXOL
     Indication: Off label use
     Dosage: 800 MILLIGRAM, QWK
     Route: 030
     Dates: start: 20030204, end: 20040217
  49. ZUCLOPENTHIXOL [Suspect]
     Active Substance: ZUCLOPENTHIXOL
     Indication: Schizophrenia
     Dosage: 800 MILLIGRAM, QWK
     Route: 030
     Dates: end: 20040217
  50. ZUCLOPENTHIXOL [Suspect]
     Active Substance: ZUCLOPENTHIXOL
     Indication: Product used for unknown indication
     Dosage: 400 MG, WEEKLY (1/W)
     Route: 030
     Dates: start: 20040217, end: 20040601
  51. LORAZEPAM [Suspect]
     Active Substance: LORAZEPAM
     Indication: Schizophrenia
     Dosage: 1 MILLIGRAM
     Route: 048
  52. TAXOL [Suspect]
     Active Substance: PACLITAXEL
     Indication: Breast cancer metastatic
     Dosage: 120 MILLIGRAM, QWK
     Route: 042
     Dates: start: 20151223, end: 20151223
  53. TAXOL [Suspect]
     Active Substance: PACLITAXEL
     Dosage: 120 MILLIGRAM, QWK
     Route: 065
     Dates: start: 20151111
  54. TAXOL [Suspect]
     Active Substance: PACLITAXEL
     Dosage: 150 MILLIGRAM, QWK
     Route: 040
     Dates: start: 20151111, end: 20151222
  55. TAXOL [Suspect]
     Active Substance: PACLITAXEL
     Dosage: 120 MILLIGRAM, QWK
     Route: 065
     Dates: start: 20151223
  56. TAXOL [Suspect]
     Active Substance: PACLITAXEL
     Dosage: 150 MILLIGRAM, QWK
     Route: 050
     Dates: start: 20151223, end: 20151223
  57. HALOPERIDOL [Suspect]
     Active Substance: HALOPERIDOL
     Indication: Schizophrenia
     Dosage: 10 MG, BID (5 MG, BID)
     Route: 065
  58. HALOPERIDOL [Suspect]
     Active Substance: HALOPERIDOL
     Dosage: 40 MILLIGRAM, QD (20 MILLIGRAM, Q12H)
     Route: 065
  59. HALOPERIDOL [Suspect]
     Active Substance: HALOPERIDOL
     Dosage: 10 MILLIGRAM, QD (5 MILLIGRAM, BID)
     Route: 065
  60. HALOPERIDOL [Suspect]
     Active Substance: HALOPERIDOL
     Dosage: 10 MILLIGRAM, BID
     Route: 048
  61. DOCETAXEL [Suspect]
     Active Substance: DOCETAXEL\DOCETAXEL ANHYDROUS
     Indication: Breast cancer metastatic
     Dosage: 110 MILLIGRAM, Q3WK
     Route: 042
     Dates: start: 20150930, end: 20151021
  62. DOCETAXEL [Suspect]
     Active Substance: DOCETAXEL\DOCETAXEL ANHYDROUS
     Dosage: 220 MILLIGRAM
     Route: 065
     Dates: start: 20151222
  63. DOCETAXEL [Suspect]
     Active Substance: DOCETAXEL\DOCETAXEL ANHYDROUS
     Dosage: 220 MILLIGRAM
     Route: 065
     Dates: start: 20150930, end: 20151021
  64. PERTUZUMAB [Suspect]
     Active Substance: PERTUZUMAB
     Indication: Breast cancer metastatic
     Dosage: 420MG, Q3W
     Route: 042
     Dates: start: 20151021
  65. PERTUZUMAB [Suspect]
     Active Substance: PERTUZUMAB
     Indication: Breast cancer metastatic
     Dosage: 840 MG, Q3W (CUMULATIVE DOSE: 2481.6667 MG
     Route: 065
  66. PERTUZUMAB [Suspect]
     Active Substance: PERTUZUMAB
     Dosage: 420 MG, Q3W (CUMULATIVE DOSE: 820.83 MG)
     Route: 050
  67. DOCETAXEL [Suspect]
     Active Substance: DOCETAXEL\DOCETAXEL ANHYDROUS
     Indication: Breast cancer metastatic
     Dosage: 110 MILLIGRAM, Q3WK
     Route: 050
     Dates: start: 20150930, end: 20151021
  68. DOCETAXEL [Suspect]
     Active Substance: DOCETAXEL\DOCETAXEL ANHYDROUS
     Dosage: 220 MILLIGRAM
     Route: 050
     Dates: start: 20151222
  69. RANITIDINE [Concomitant]
     Active Substance: RANITIDINE
     Indication: Gastrooesophageal reflux disease
     Dosage: 50 MILLIGRAM, QWK
     Route: 065
     Dates: start: 20151111
  70. RANITIDINE [Concomitant]
     Active Substance: RANITIDINE
     Indication: Gastrooesophageal reflux disease
  71. PREGABALIN [Concomitant]
     Active Substance: PREGABALIN
     Indication: Product used for unknown indication
     Dosage: 150 MILLIGRAM, QD
     Route: 048
     Dates: start: 201509
  72. TAZOBACTAM SODIUM [Concomitant]
     Active Substance: TAZOBACTAM SODIUM
     Indication: Febrile neutropenia
     Dosage: UNK
     Route: 065
     Dates: start: 20151121
  73. AMOXICILLIN\CLAVULANATE POTASSIUM [Concomitant]
     Active Substance: AMOXICILLIN\CLAVULANATE POTASSIUM
     Indication: Febrile neutropenia
     Dosage: 625 MG, QID
     Route: 048
     Dates: start: 20151122
  74. LEVOFLOXACIN [Concomitant]
     Active Substance: LEVOFLOXACIN
     Indication: Febrile neutropenia
     Dosage: 500MG, QD
     Route: 040
     Dates: start: 20151125
  75. MORPHINE [Concomitant]
     Active Substance: MORPHINE
     Indication: Pain
     Dosage: 30 MG (EVERY 0.5 DAY)
     Route: 048
     Dates: start: 201509
  76. GENTAMICIN [Concomitant]
     Active Substance: GENTAMICIN
     Indication: Febrile neutropenia
     Dosage: UNK
     Route: 040
     Dates: start: 20151121, end: 201511
  77. PIPERACILLIN SODIUM\TAZOBACTAM SODIUM [Concomitant]
     Active Substance: PIPERACILLIN SODIUM\TAZOBACTAM SODIUM
     Indication: Febrile neutropenia
     Dosage: UNK
     Route: 065
     Dates: start: 20151121, end: 201511
  78. MIRTAZAPINE [Concomitant]
     Active Substance: MIRTAZAPINE
     Dosage: 15 MG, DAILY
     Route: 048
     Dates: start: 201510
  79. MORPHINE SULFATE [Concomitant]
     Active Substance: MORPHINE SULFATE
     Dosage: 10 MG
     Route: 065
     Dates: start: 201509
  80. CALCIUM\CHOLECALCIFEROL [Concomitant]
     Active Substance: CALCIUM\CHOLECALCIFEROL
     Dosage: 2 DOSAGE FORM, QD
     Dates: start: 20091018
  81. CHLORPHENIRAMINE MALEATE [Concomitant]
     Active Substance: CHLORPHENIRAMINE MALEATE
     Dosage: 10 MG WEEKLY
     Route: 058
     Dates: start: 20151111
  82. CHOLECALCIFEROL [Concomitant]
     Active Substance: CHOLECALCIFEROL
     Dosage: 2 DOSAGE FORM, QD
     Route: 048
  83. DULOXETINE [Concomitant]
     Active Substance: DULOXETINE
     Indication: Breast cancer metastatic
     Dosage: 110 MG, TIW
     Route: 042
     Dates: start: 20150930, end: 20151021
  84. ACETAMINOPHEN [Concomitant]
     Active Substance: ACETAMINOPHEN
     Indication: Pain
     Dosage: 500 MG
     Dates: start: 20150127

REACTIONS (38)
  - Affective disorder [Fatal]
  - Alopecia [Fatal]
  - Cellulitis [Fatal]
  - COVID-19 [Fatal]
  - Delusion of grandeur [Fatal]
  - Diarrhoea [Fatal]
  - Disease progression [Fatal]
  - Dyspepsia [Fatal]
  - Extrapyramidal disorder [Fatal]
  - Extrapyramidal disorder [Fatal]
  - Fatigue [Fatal]
  - Fatigue [Fatal]
  - Fatigue [Fatal]
  - Hallucination, auditory [Fatal]
  - Hospitalisation [Fatal]
  - Incorrect dose administered [Fatal]
  - Intentional product misuse [Fatal]
  - Leukocytosis [Fatal]
  - Leukopenia [Fatal]
  - Lymphocyte count abnormal [Fatal]
  - Lymphocyte count decreased [Fatal]
  - Mucosal inflammation [Fatal]
  - Nausea [Fatal]
  - Neoplasm progression [Fatal]
  - Neuropathy peripheral [Fatal]
  - Neutropenia [Fatal]
  - Neutrophil count decreased [Fatal]
  - Neutrophil count increased [Fatal]
  - Off label use [Fatal]
  - Off label use [Fatal]
  - Overdose [Fatal]
  - Platelet count decreased [Fatal]
  - Psychotic disorder [Fatal]
  - Rhinalgia [Fatal]
  - SARS-CoV-2 test positive [Fatal]
  - Schizophrenia [Fatal]
  - Seizure [Fatal]
  - Thrombocytopenia [Fatal]

NARRATIVE: CASE EVENT DATE: 20151101
